FAERS Safety Report 8303023-5 (Version None)
Quarter: 2012Q2

REPORT INFORMATION
  Report Type: 
  Country: None (occurrence: None)
  Receive Date: 20120421
  Receipt Date: 20120409
  Transmission Date: 20120825
  Serious: No
  Sender: FDA-Public Use
  Company Number: US-ROXANE LABORATORIES, INC.-2012-RO-01012RO

PATIENT

DRUGS (1)
  1. CODEINE SUL TAB [Suspect]
     Indication: NASOPHARYNGITIS

REACTIONS (1)
  - CONSTIPATION [None]
